FAERS Safety Report 7743902-0 (Version None)
Quarter: 2011Q3

REPORT INFORMATION
  Report Type: 
  Country: None (occurrence: None)
  Receive Date: 20110912
  Receipt Date: 20110902
  Transmission Date: 20111222
  Serious: Yes (Hospitalization)
  Sender: FDA-Public Use
  Company Number: US-GLAXOSMITHKLINE-A0944094A

PATIENT
  Age: 27 Year
  Sex: Female

DRUGS (3)
  1. LAMICTAL [Suspect]
     Indication: DEPRESSION
     Dosage: 100MG PER DAY
     Route: 065
     Dates: start: 20100115, end: 20100429
  2. LAMICTAL [Suspect]
     Dosage: 400MG PER DAY
     Route: 065
     Dates: start: 20100707, end: 20100728
  3. WELLBUTRIN [Suspect]
     Indication: DEPRESSION
     Route: 065

REACTIONS (3)
  - PRE-ECLAMPSIA [None]
  - PREMATURE DELIVERY [None]
  - MATERNAL EXPOSURE DURING PREGNANCY [None]
